FAERS Safety Report 11083929 (Version 1)
Quarter: 2015Q2

REPORT INFORMATION
  Report Type: Spontaneous
  Country: US (occurrence: US)
  Receive Date: 20150501
  Receipt Date: 20150501
  Transmission Date: 20150821
  Serious: No
  Sender: FDA-Public Use
  Company Number: US-PFIZER INC-2015133367

PATIENT
  Age: 72 Year
  Sex: Male
  Weight: 96 kg

DRUGS (1)
  1. CORTISONE [Suspect]
     Active Substance: CORTISONE\HYDROCORTISONE
     Indication: RASH PRURITIC
     Dosage: 3 CC, UNK
     Dates: start: 20150401

REACTIONS (1)
  - Drug ineffective [Unknown]
